FAERS Safety Report 10383012 (Version 1)
Quarter: 2014Q3

REPORT INFORMATION
  Report Type: Spontaneous
  Country: US (occurrence: US)
  Receive Date: 20140813
  Receipt Date: 20140813
  Transmission Date: 20150326
  Serious: No
  Sender: FDA-Public Use
  Company Number: US-SA-2014SA084095

PATIENT
  Sex: Female
  Weight: 63.5 kg

DRUGS (2)
  1. ARANESP [Concomitant]
     Active Substance: DARBEPOETIN ALFA
  2. FABRAZYME [Suspect]
     Active Substance: AGALSIDASE BETA
     Indication: FABRY^S DISEASE
     Route: 042

REACTIONS (4)
  - Nausea [Unknown]
  - Blood pressure abnormal [Unknown]
  - Malaise [Unknown]
  - Abdominal pain upper [Unknown]
